FAERS Safety Report 25650089 (Version 1)
Quarter: 2025Q3

REPORT INFORMATION
  Report Type: Other
  Country: NG (occurrence: NG)
  Receive Date: 20250806
  Receipt Date: 20250806
  Transmission Date: 20251020
  Serious: Yes (Hospitalization, Other)
  Sender: APTAPHARMA INC.
  Company Number: NG-AptaPharma Inc.-2181955

PATIENT
  Age: 21 Year
  Sex: Male

DRUGS (5)
  1. IBUPROFEN [Suspect]
     Active Substance: IBUPROFEN
     Indication: Pain
  2. DICLOFENAC SODIUM [Suspect]
     Active Substance: DICLOFENAC SODIUM
  3. ASTYMIN [Concomitant]
  4. FOLIC ACID [Concomitant]
     Active Substance: FOLIC ACID
  5. PENTAZOCINE [Concomitant]
     Active Substance: PENTAZOCINE

REACTIONS (3)
  - Ileal perforation [Unknown]
  - Peritonitis [Unknown]
  - Gastric perforation [Unknown]
